FAERS Safety Report 9164845 (Version 4)
Quarter: 2013Q3

REPORT INFORMATION
  Report Type: Spontaneous
  Country: US (occurrence: None)
  Receive Date: 20130227
  Receipt Date: 20130910
  Transmission Date: 20140515
  Serious: Yes (Hospitalization)
  Sender: FDA-Public Use
  Company Number: 145678

PATIENT
  Age: 48 Year
  Sex: Female
  Weight: 42 kg

DRUGS (1)
  1. LEUCOVORIN CALCIUM [Suspect]
     Indication: PRODUCT USED FOR UNKNOWN INDICATION
     Dosage: 400MG/M2 ON DAY ONE EVERY 14 DAYS
     Dates: start: 20120406

REACTIONS (5)
  - Abdominal distension [None]
  - Discomfort [None]
  - Feeding tube complication [None]
  - Catheter site inflammation [None]
  - Catheter site extravasation [None]
